FAERS Safety Report 14181943 (Version 1)
Quarter: 2017Q4

REPORT INFORMATION
  Report Type: Spontaneous
  Country: US (occurrence: US)
  Receive Date: 20171113
  Receipt Date: 20171113
  Transmission Date: 20180321
  Serious: No
  Sender: FDA-Public Use
  Company Number: US-TEVA-741738ACC

PATIENT
  Age: 12 Year
  Sex: Female

DRUGS (1)
  1. TROSPIUM CHLORIDE EXTENDED-RELEASE CAPSULES [Suspect]
     Active Substance: TROSPIUM CHLORIDE
     Indication: INCONTINENCE

REACTIONS (2)
  - Product substitution issue [Unknown]
  - Enuresis [Unknown]

NARRATIVE: CASE EVENT DATE: 201612
